FAERS Safety Report 4358626-X (Version None)
Quarter: 2004Q2

REPORT INFORMATION
  Report Type: 
  Country: None (occurrence: None)
  Receive Date: 20040514
  Receipt Date: 20040514
  Transmission Date: 20050107
  Serious: Yes (Life-Threatening, Hospitalization)
  Sender: FDA-Public Use
  Company Number: None

PATIENT
  Age: 61 Year
  Sex: Male
  Weight: 99.7 kg

DRUGS (10)
  1. DOFETILIDE TAB 250 UG [Suspect]
     Indication: ATRIAL FIBRILLATION
     Dosage: 250 UG Q12 H ORAL
     Route: 048
     Dates: start: 20040402, end: 20040411
  2. DOFETILIDE TAB 250 UG [Suspect]
     Indication: CARDIAC FAILURE CONGESTIVE
     Dosage: 250 UG Q12 H ORAL
     Route: 048
     Dates: start: 20040402, end: 20040411
  3. LEVOFLOXACIN [Suspect]
     Indication: PNEUMONIA
     Dosage: 500 MG DAILY ORAL
     Route: 048
     Dates: start: 20040406, end: 20040411
  4. PREDNISONE [Concomitant]
  5. FUROSEMIDE [Concomitant]
  6. GLYBURIDE [Concomitant]
  7. PANTOPRAZOLE [Concomitant]
  8. LORAZEPAM [Concomitant]
  9. DIGOXIN [Concomitant]
  10. KCL TAB [Concomitant]

REACTIONS (1)
  - TORSADE DE POINTES [None]
